FAERS Safety Report 15213128 (Version 3)
Quarter: 2018Q4

REPORT INFORMATION
  Report Type: Spontaneous
  Country: DE (occurrence: DE)
  Receive Date: 20180730
  Receipt Date: 20181005
  Transmission Date: 20190204
  Serious: Yes (Death, Other)
  Sender: FDA-Public Use
  Company Number: DE-ROCHE-2160751

PATIENT
  Age: 66 Year
  Sex: Male
  Weight: 80 kg

DRUGS (2)
  1. ACTILYSE [Suspect]
     Active Substance: ALTEPLASE
     Indication: FEMORAL ARTERY EMBOLISM
     Route: 013
     Dates: start: 20180713
  2. HEPARIN [Concomitant]
     Active Substance: HEPARIN SODIUM
     Indication: PRODUCT USED FOR UNKNOWN INDICATION
     Dosage: 24000 DOSAGE FORMS
     Route: 042

REACTIONS (5)
  - Muscle necrosis [Unknown]
  - Multiple organ dysfunction syndrome [Unknown]
  - Blood thrombin increased [Unknown]
  - Death [Fatal]
  - Embolism [Unknown]

NARRATIVE: CASE EVENT DATE: 20180714
